FAERS Safety Report 8532488-9 (Version None)
Quarter: 2012Q3

REPORT INFORMATION
  Report Type: 
  Country: None (occurrence: None)
  Receive Date: 20120716
  Receipt Date: 20120716
  Transmission Date: 20120928
  Serious: Yes (Other)
  Sender: FDA-Public Use
  Company Number: None

PATIENT
  Age: 50 Year
  Sex: Male
  Weight: 72.5755 kg

DRUGS (8)
  1. LEVOFLOXACIN [Suspect]
     Indication: PROSTATITIS
     Dosage: 1 DAILY PO
     Route: 048
  2. NEXIUM [Suspect]
     Indication: ANGINA PECTORIS
     Dosage: 1 DAILY PO
  3. LOSARTAN POTASSIUM [Concomitant]
  4. NEXIUM [Concomitant]
  5. THEOPHYLLINE [Concomitant]
  6. DIFLUCAN [Concomitant]
  7. NASONEX [Concomitant]
  8. WARFARIN SODIUM [Concomitant]

REACTIONS (3)
  - TENDONITIS [None]
  - RASH ERYTHEMATOUS [None]
  - ASTHENIA [None]
